FAERS Safety Report 6071953-3 (Version None)
Quarter: 2009Q1

REPORT INFORMATION
  Report Type: 
  Country: None (occurrence: None)
  Receive Date: 20090205
  Receipt Date: 20090205
  Transmission Date: 20090719
  Serious: Yes (Life-Threatening, Hospitalization)
  Sender: FDA-Public Use
  Company Number: None

PATIENT
  Age: 50 Year
  Sex: Male
  Weight: 82 kg

DRUGS (1)
  1. METFORMIN HCL [Suspect]
     Indication: TYPE 2 DIABETES MELLITUS
     Dosage: UNKNOWN BID PO APPROXIMATELY 10 YEARS
     Route: 048

REACTIONS (7)
  - ABDOMINAL PAIN [None]
  - ACIDOSIS [None]
  - CHEST PAIN [None]
  - DIABETIC KETOACIDOSIS [None]
  - DIARRHOEA [None]
  - NAUSEA [None]
  - VOMITING [None]
